FAERS Safety Report 8330905-0 (Version None)
Quarter: 2012Q2

REPORT INFORMATION
  Report Type: 
  Country: None (occurrence: None)
  Receive Date: 20120502
  Receipt Date: 20120427
  Transmission Date: 20120825
  Serious: Yes (Death)
  Sender: FDA-Public Use
  Company Number: JP-PFIZER INC-2012081012

PATIENT
  Age: 52 Year
  Sex: Male
  Weight: 63 kg

DRUGS (14)
  1. NORVASC [Concomitant]
     Dosage: 5 MG, 1X/DAY
     Route: 048
  2. POLARAMINE [Concomitant]
     Indication: PROPHYLAXIS
     Dosage: 5 MG, UNK
     Route: 042
  3. FERROUS CITRATE [Concomitant]
     Dosage: UNK
     Route: 048
  4. ROHYPNOL [Concomitant]
     Dosage: 2 MG, 1X/DAY
     Route: 048
  5. DEPAS [Concomitant]
     Dosage: 0.5 MG, 1X/DAY
     Route: 048
  6. DESYREL [Concomitant]
     Dosage: 25 MG, 1X/DAY
     Route: 048
  7. OXYCODONE HCL [Concomitant]
     Dosage: UNK
     Route: 048
  8. LANSOPRAZOLE [Concomitant]
     Dosage: 15 MG, 1X/DAY
     Route: 048
  9. FENTANYL-100 [Concomitant]
     Dosage: UNK
     Route: 061
  10. TEMSIROLIMUS [Suspect]
     Indication: RENAL CELL CARCINOMA
     Dosage: 25 MG, WEEKLY
     Route: 042
     Dates: start: 20110331
  11. LOXONIN [Concomitant]
     Dosage: UNK
     Route: 048
  12. TOLEDOMIN [Concomitant]
     Dosage: UNK
     Route: 048
  13. DOGMATIL [Concomitant]
     Dosage: UNK
     Route: 048
  14. LORAZEPAM [Concomitant]
     Dosage: UNK
     Route: 048

REACTIONS (2)
  - DISEASE PROGRESSION [None]
  - RENAL CANCER [None]
